FAERS Safety Report 9441222 (Version 2)
Quarter: 2013Q3

REPORT INFORMATION
  Report Type: Spontaneous
  Country: US (occurrence: US)
  Receive Date: 20130805
  Receipt Date: 20130820
  Transmission Date: 20140515
  Serious: No
  Sender: FDA-Public Use
  Company Number: US-009507513-1308USA001944

PATIENT
  Age: 79 Year
  Sex: Male
  Weight: 77.98 kg

DRUGS (3)
  1. MIRALAX [Suspect]
     Indication: CONSTIPATION
     Dosage: 17 G, QD
     Route: 048
     Dates: start: 20130715, end: 20130721
  2. MIRALAX [Suspect]
     Indication: MEDICAL OBSERVATION
  3. GLUCOPHAGE [Concomitant]
     Indication: TYPE 2 DIABETES MELLITUS
     Dosage: UNK, UNKNOWN

REACTIONS (2)
  - Flatulence [Recovered/Resolved]
  - Drug ineffective [Unknown]
